FAERS Safety Report 26125967 (Version 1)
Quarter: 2025Q4

REPORT INFORMATION
  Report Type: Spontaneous
  Country: US (occurrence: None)
  Receive Date: 20251204
  Receipt Date: 20251204
  Transmission Date: 20260119
  Serious: Yes (Other)
  Sender: FDA-CTU
  Company Number: None

PATIENT
  Age: 32 Year
  Sex: Female
  Weight: 81 kg

DRUGS (13)
  1. LIVDELZI [Suspect]
     Active Substance: SELADELPAR LYSINE
     Indication: Primary biliary cholangitis
     Dates: start: 20250922, end: 20251126
  2. FENOFIBRATE [Suspect]
     Active Substance: FENOFIBRATE
     Dates: start: 20241003, end: 20250923
  3. VIVITROL [Concomitant]
     Active Substance: NALTREXONE
     Dates: start: 20250516
  4. AZATHIOPRINE [Concomitant]
     Active Substance: AZATHIOPRINE
     Dates: start: 20240213
  5. MECLIZINE [Concomitant]
     Active Substance: MECLIZINE HYDROCHLORIDE
     Dates: start: 20250919
  6. MIRALAX [Concomitant]
     Active Substance: POLYETHYLENE GLYCOL 3350
     Dates: start: 20250609
  7. ACETAMINOPHEN [Concomitant]
     Active Substance: ACETAMINOPHEN
     Dates: start: 20251009
  8. CHOLECALCIFEROL [Concomitant]
     Active Substance: CHOLECALCIFEROL
     Dates: start: 20250303
  9. FOLIC ACID [Concomitant]
     Active Substance: FOLIC ACID
     Dates: start: 20250710
  10. ONDANSETRON [Concomitant]
     Active Substance: ONDANSETRON
     Dates: start: 20250710
  11. PREDNISONE [Concomitant]
     Active Substance: PREDNISONE
     Dates: start: 20250224
  12. URSODIOL [Suspect]
     Active Substance: URSODIOL
     Dates: start: 20240205
  13. THIAMINE [Concomitant]
     Active Substance: THIAMINE
     Dates: start: 20250710

REACTIONS (2)
  - Therapy non-responder [None]
  - Blood alkaline phosphatase increased [None]

NARRATIVE: CASE EVENT DATE: 20251120
